FAERS Safety Report 16809162 (Version 1)
Quarter: 2019Q3

REPORT INFORMATION
  Report Type: Report from Study
  Country: US (occurrence: US)
  Receive Date: 20190916
  Receipt Date: 20190916
  Transmission Date: 20191005
  Serious: Yes (Hospitalization, Other)
  Sender: FDA-Public Use
  Company Number: US-MYLANLABS-2019M1076702

PATIENT
  Sex: Male
  Weight: 110.8 kg

DRUGS (8)
  1. INVEGA SUSTENNA [Concomitant]
     Active Substance: PALIPERIDONE PALMITATE
     Indication: PRODUCT USED FOR UNKNOWN INDICATION
     Dosage: 234 MILLIGRAM, FOR 28 DAYS1 M
  2. SERTRALINE [Concomitant]
     Active Substance: SERTRALINE HYDROCHLORIDE
     Indication: PRODUCT USED FOR UNKNOWN INDICATION
     Dosage: 100 MILLIGRAM, QD
  3. CLOZAPINE. [Suspect]
     Active Substance: CLOZAPINE
     Indication: SCHIZOAFFECTIVE DISORDER
     Dosage: 100 MILLIGRAM, BID
     Route: 048
     Dates: start: 20190724, end: 20190808
  4. LITHIUM. [Concomitant]
     Active Substance: LITHIUM
     Indication: PRODUCT USED FOR UNKNOWN INDICATION
     Dosage: 600 MILLIGRAM, BID
  5. CLOZAPINE. [Suspect]
     Active Substance: CLOZAPINE
     Dosage: UNK
     Route: 048
     Dates: start: 20190724, end: 20190802
  6. ACETYLSALICYLIC ACID [Concomitant]
     Active Substance: ASPIRIN
     Indication: PRODUCT USED FOR UNKNOWN INDICATION
     Dosage: 81 MILLIGRAM, QD
  7. MICATIN JOCK ITCH [Concomitant]
     Indication: PRODUCT USED FOR UNKNOWN INDICATION
     Dosage: 21 MILLIGRAM
  8. PERI-COLACE                        /00071801/ [Concomitant]
     Dosage: UNK, BID

REACTIONS (5)
  - Troponin increased [Unknown]
  - Dyspnoea [Unknown]
  - Electrocardiogram change [Unknown]
  - Left ventricular dysfunction [Unknown]
  - Cardiomyopathy [Unknown]

NARRATIVE: CASE EVENT DATE: 2019
